FAERS Safety Report 16075756 (Version 8)
Quarter: 2020Q1

REPORT INFORMATION
  Report Type: Spontaneous
  Country: US (occurrence: US)
  Receive Date: 20190315
  Receipt Date: 20200129
  Transmission Date: 20200409
  Serious: Yes (Other)
  Sender: FDA-Public Use
  Company Number: US-GLAXOSMITHKLINE-US2019GSK046325

PATIENT
  Sex: Male

DRUGS (1)
  1. PREVACID [Suspect]
     Active Substance: LANSOPRAZOLE
     Indication: GASTROOESOPHAGEAL REFLUX DISEASE
     Dosage: 15 MG, QD
     Route: 065

REACTIONS (7)
  - Acute kidney injury [Unknown]
  - End stage renal disease [Unknown]
  - Renal mass [Unknown]
  - Hydronephrosis [Unknown]
  - Renal injury [Unknown]
  - Chronic kidney disease [Unknown]
  - Dialysis [Unknown]
